FAERS Safety Report 21796796 (Version 1)
Quarter: 2022Q4

REPORT INFORMATION
  Report Type: Spontaneous
  Country: US (occurrence: None)
  Receive Date: 20221230
  Receipt Date: 20221230
  Transmission Date: 20230112
  Serious: No
  Sender: FDA-Public Use
  Company Number: 2022A412216

PATIENT
  Sex: Male

DRUGS (1)
  1. FASENRA [Suspect]
     Active Substance: BENRALIZUMAB
     Route: 058

REACTIONS (6)
  - Asthma [Unknown]
  - Cardiac disorder [Unknown]
  - Illness [Unknown]
  - COVID-19 [Unknown]
  - Weight increased [Unknown]
  - Hypoacusis [Unknown]
